FAERS Safety Report 5069769-X (Version None)
Quarter: 2006Q3

REPORT INFORMATION
  Report Type: 
  Country: None (occurrence: None)
  Receive Date: 20060803
  Receipt Date: 20060728
  Transmission Date: 20061208
  Serious: Yes (Other)
  Sender: FDA-Public Use
  Company Number: CA-GLAXOSMITHKLINE-A0614499A

PATIENT
  Sex: Female

DRUGS (1)
  1. ADVAIR DISKUS 100/50 [Suspect]
     Indication: ASTHMA
     Route: 055
     Dates: start: 20050501

REACTIONS (3)
  - BLOOD CORTICOTROPHIN ABNORMAL [None]
  - BLOOD CORTISOL DECREASED [None]
  - SECONDARY ADRENOCORTICAL INSUFFICIENCY [None]
